FAERS Safety Report 16847291 (Version 4)
Quarter: 2019Q4

REPORT INFORMATION
  Report Type: Report from Study
  Country: ES (occurrence: ES)
  Receive Date: 20190924
  Receipt Date: 20191018
  Transmission Date: 20200122
  Serious: Yes (Other)
  Sender: FDA-Public Use
  Company Number: ES-BRISTOL-MYERS SQUIBB COMPANY-BMS-2019-091876

PATIENT
  Age: 14 Year
  Sex: Male

DRUGS (1)
  1. APIXABAN [Suspect]
     Active Substance: APIXABAN
     Indication: EMBOLISM VENOUS
     Dosage: 10 MILLIGRAM
     Route: 048
     Dates: start: 20190326

REACTIONS (1)
  - Shunt thrombosis [Recovered/Resolved]

NARRATIVE: CASE EVENT DATE: 20190912
